FAERS Safety Report 18345624 (Version 1)
Quarter: 2020Q4

REPORT INFORMATION
  Report Type: Spontaneous
  Country: US (occurrence: US)
  Receive Date: 20201005
  Receipt Date: 20201005
  Transmission Date: 20210114
  Serious: No
  Sender: FDA-Public Use
  Company Number: US-AMNEAL PHARMACEUTICALS-2020-AMRX-02534

PATIENT
  Age: 22 Year
  Sex: Female
  Weight: 68.03 kg

DRUGS (1)
  1. ELURYNG [Suspect]
     Active Substance: ETHINYL ESTRADIOL\ETONOGESTREL
     Indication: CONTRACEPTION
     Dosage: 0.12/0.015 MG/DAY; 12 WEEKS INCREMENTAL
     Route: 067
     Dates: start: 2019, end: 20200818

REACTIONS (3)
  - Device issue [Recovered/Resolved]
  - Vulvovaginal pain [Recovered/Resolved]
  - Scratch [Recovered/Resolved]

NARRATIVE: CASE EVENT DATE: 20200818
